FAERS Safety Report 6344410-4 (Version None)
Quarter: 2009Q3

REPORT INFORMATION
  Report Type: 
  Country: None (occurrence: None)
  Receive Date: 20090908
  Receipt Date: 20090827
  Transmission Date: 20100115
  Serious: Yes (Other)
  Sender: FDA-Public Use
  Company Number: PHEH2009US10067

PATIENT
  Sex: Female

DRUGS (2)
  1. EXFORGE [Suspect]
     Dosage: 160/5 MG, UNK
  2. PROZAC [Concomitant]
     Dosage: UNK, UNK

REACTIONS (7)
  - ANGIOPATHY [None]
  - BLOOD POTASSIUM ABNORMAL [None]
  - DEHYDRATION [None]
  - DIZZINESS [None]
  - HEAT EXHAUSTION [None]
  - MYDRIASIS [None]
  - SYNCOPE [None]
